FAERS Safety Report 7468361-7 (Version None)
Quarter: 2011Q2

REPORT INFORMATION
  Report Type: 
  Country: None (occurrence: None)
  Receive Date: 20110509
  Receipt Date: 20110505
  Transmission Date: 20111010
  Serious: No
  Sender: FDA-Public Use
  Company Number: IT-ABBOTT-09P-083-0600108-00

PATIENT
  Sex: Male

DRUGS (1)
  1. CLARITHROMYCIN [Suspect]
     Indication: ARTHROPOD STING
     Dosage: 2 UNITS
     Route: 048
     Dates: start: 20090906, end: 20090906

REACTIONS (1)
  - LIP OEDEMA [None]
